FAERS Safety Report 9674726 (Version 1)
Quarter: 2013Q4

REPORT INFORMATION
  Report Type: Report from Study
  Country: CA (occurrence: CA)
  Receive Date: 20131107
  Receipt Date: 20131107
  Transmission Date: 20140711
  Serious: Yes (Hospitalization)
  Sender: FDA-Public Use
  Company Number: CA-JNJFOC-20131101026

PATIENT
  Age: 74 Year
  Sex: Female
  Weight: 50.2 kg

DRUGS (6)
  1. REMICADE [Suspect]
     Indication: CROHN^S DISEASE
     Route: 042
     Dates: start: 20090617
  2. REMICADE [Suspect]
     Indication: RHEUMATOID ARTHRITIS
     Route: 042
     Dates: start: 20090617
  3. MTX [Concomitant]
     Route: 065
  4. FOLIC ACID [Concomitant]
     Route: 065
  5. PANTOLOC [Concomitant]
     Route: 065
  6. CODEINE [Concomitant]
     Route: 065

REACTIONS (1)
  - Chest pain [Recovered/Resolved]
